FAERS Safety Report 5725352-1 (Version None)
Quarter: 2008Q2

REPORT INFORMATION
  Report Type: 
  Country: None (occurrence: None)
  Receive Date: 20080429
  Receipt Date: 20080416
  Transmission Date: 20081010
  Serious: Yes (Other)
  Sender: FDA-Public Use
  Company Number: S08-USA-01484-01

PATIENT
  Age: 75 Year
  Sex: Male

DRUGS (4)
  1. LEXAPRO [Suspect]
     Indication: GENERALISED ANXIETY DISORDER
     Dosage: 10 MG QD PO
     Route: 048
     Dates: start: 20080315
  2. LEXAPRO [Suspect]
     Indication: GENERALISED ANXIETY DISORDER
     Dosage: 5 MG QD PO
     Route: 048
     Dates: start: 20080310, end: 20080314
  3. TIAZAC [Concomitant]
  4. COZAAR [Concomitant]

REACTIONS (2)
  - CONDITION AGGRAVATED [None]
  - EXTRASYSTOLES [None]
